FAERS Safety Report 4864158-2 (Version None)
Quarter: 2005Q4

REPORT INFORMATION
  Report Type: 
  Country: None (occurrence: None)
  Receive Date: 20051222
  Receipt Date: 20051220
  Transmission Date: 20060501
  Serious: Yes (Other)
  Sender: FDA-Public Use
  Company Number: ES-GLAXOSMITHKLINE-B0404482A

PATIENT
  Age: 68 Year
  Sex: Female

DRUGS (2)
  1. SERETIDE [Suspect]
     Indication: ASTHMA
     Route: 065
  2. CORTICOIDS [Concomitant]

REACTIONS (3)
  - CYANOSIS [None]
  - HYPERSENSITIVITY [None]
  - MALAISE [None]
